FAERS Safety Report 10764687 (Version 2)
Quarter: 2018Q4

REPORT INFORMATION
  Report Type: Report from Study
  Country: US (occurrence: US)
  Receive Date: 20150205
  Receipt Date: 20181226
  Transmission Date: 20190204
  Serious: Yes (Other)
  Sender: FDA-Public Use
  Company Number: US-CIPLA LTD.-2015US00834

PATIENT

DRUGS (4)
  1. FILGRASTIM [Concomitant]
     Active Substance: FILGRASTIM
     Indication: PRODUCT USED FOR UNKNOWN INDICATION
     Dosage: UNK, 24 TO 72 HOURS AFTER THE LAST DOSE OF TOPOTECAN AND VELIPARIB
     Route: 058
  2. TOPOTECAN [Suspect]
     Active Substance: TOPOTECAN HYDROCHLORIDE
     Indication: CERVIX CARCINOMA
     Dosage: 0.6 MG/M2, QD ON DAYS 1 TO 5 OF A TREATMENT CYCLE, EVERY 21 DAYS
     Route: 042
  3. VELIPARIB [Suspect]
     Active Substance: VELIPARIB
     Indication: CERVIX CARCINOMA
     Dosage: 10 MG, BID ON DAYS 1 TO 5 OF A TREATMENT CYCLE, EVERY 21 DAYS
     Route: 048
  4. PEGFILGRASTIM [Concomitant]
     Active Substance: PEGFILGRASTIM
     Indication: PRODUCT USED FOR UNKNOWN INDICATION
     Dosage: 6 MG, 1 DOSE PER TREATMENT CYCLE, 24 TO 72 HOURS AFTER THE LAST DOSE OF TOPOTECAN
     Route: 058

REACTIONS (1)
  - Cardiac disorder [Unknown]
